FAERS Safety Report 22939074 (Version 4)
Quarter: 2023Q4

REPORT INFORMATION
  Report Type: Report from Study
  Country: CN (occurrence: CN)
  Receive Date: 20230913
  Receipt Date: 20231101
  Transmission Date: 20240109
  Serious: Yes (Hospitalization)
  Sender: FDA-Public Use
  Company Number: CN-002147023-NVSC2023CN193484

PATIENT
  Age: 37 Year
  Sex: Female
  Weight: 60.8 kg

DRUGS (8)
  1. KISQALI [Suspect]
     Active Substance: RIBOCICLIB
     Indication: HER2 negative breast cancer
     Dosage: 400 MG, D1-D21
     Route: 048
     Dates: start: 20210127, end: 20230811
  2. FEMARA [Suspect]
     Active Substance: LETROZOLE
     Indication: HER2 negative breast cancer
     Dosage: 2.5 MG, QD
     Route: 048
     Dates: start: 20210127
  3. GOSERELIN [Suspect]
     Active Substance: GOSERELIN
     Indication: HER2 negative breast cancer
     Dosage: 3.6 MG, Q4W
     Route: 058
     Dates: start: 20210127, end: 20230809
  4. HEPARIN SODIUM [Concomitant]
     Active Substance: HEPARIN SODIUM
     Indication: Thrombosis prophylaxis
     Dosage: 4100 IU, QD
     Route: 065
     Dates: start: 20230826
  5. POLYETHYLENE GLYCOL [Concomitant]
     Active Substance: POLYETHYLENE GLYCOL
     Indication: Preoperative care
     Dosage: 137.12 G, ONCE
     Route: 048
     Dates: start: 20230824
  6. BENZALKONIUM CHLORIDE [Concomitant]
     Active Substance: BENZALKONIUM CHLORIDE
     Indication: Vaginal douching
     Dosage: 150 ML, EXTERNAL USE, ONCE
     Route: 065
     Dates: start: 20230824
  7. CEFOXITIN SODIUM [Concomitant]
     Active Substance: CEFOXITIN SODIUM
     Indication: Infection prophylaxis
     Dosage: 1 G, Q8H
     Route: 042
     Dates: start: 20230825
  8. WATER-SOLUBLE VITAMINS [Concomitant]
     Indication: Fluid replacement
     Dosage: 5 ML, ONCE
     Route: 042
     Dates: start: 20230825

REACTIONS (1)
  - Ovarian cyst [Recovered/Resolved]

NARRATIVE: CASE EVENT DATE: 20230823
